FAERS Safety Report 14759604 (Version 2)
Quarter: 2018Q2

REPORT INFORMATION
  Report Type: Spontaneous
  Country: DE (occurrence: DE)
  Receive Date: 20180413
  Receipt Date: 20180518
  Transmission Date: 20180711
  Serious: Yes (Hospitalization, Congenital Anomaly, Other)
  Sender: FDA-Public Use
  Company Number: DE-IMPAX LABORATORIES, INC-2018-IPXL-01141

PATIENT
  Sex: Female

DRUGS (4)
  1. CARBIDOPA-LEVODOPA ER [Suspect]
     Active Substance: CARBIDOPA\LEVODOPA
     Indication: DYSTONIA
     Dosage: UNK
     Route: 065
  2. CARBIDOPA-LEVODOPA ER [Suspect]
     Active Substance: CARBIDOPA\LEVODOPA
     Indication: PRODUCT USE IN UNAPPROVED INDICATION
  3. DIVALPROEX SODIUM ER [Suspect]
     Active Substance: DIVALPROEX SODIUM
     Indication: MATERNAL EXPOSURE DURING PREGNANCY
     Dosage: UNK
     Route: 064
  4. CARBIDOPA-LEVODOPA ER [Suspect]
     Active Substance: CARBIDOPA\LEVODOPA
     Indication: PRODUCT USE ISSUE

REACTIONS (10)
  - Irritability [Unknown]
  - Maternal exposure during pregnancy [Unknown]
  - Drug administered to patient of inappropriate age [Unknown]
  - Opisthotonus [Unknown]
  - Foetal anticonvulsant syndrome [Unknown]
  - Drug ineffective for unapproved indication [Unknown]
  - Early onset primary dystonia [Recovering/Resolving]
  - Product use issue [Unknown]
  - Neonatal respiratory distress [Unknown]
  - Congenital cytomegalovirus infection [Unknown]
